FAERS Safety Report 17762463 (Version 1)
Quarter: 2020Q2

REPORT INFORMATION
  Report Type: Spontaneous
  Country: US (occurrence: US)
  Receive Date: 20200508
  Receipt Date: 20200508
  Transmission Date: 20200714
  Serious: Yes (Hospitalization, Other)
  Sender: FDA-Public Use
  Company Number: US-INDIVIOR EUROPE LIMITED-INDV-124658-2020

PATIENT
  Age: 31 Year
  Sex: Female

DRUGS (4)
  1. ONDANSETRON [Suspect]
     Active Substance: ONDANSETRON
     Indication: NAUSEA
     Dosage: UNK
     Route: 065
  2. SUBOXONE [Suspect]
     Active Substance: BUPRENORPHINE HYDROCHLORIDE\NALOXONE HYDROCHLORIDE
     Indication: PRODUCT USED FOR UNKNOWN INDICATION
     Dosage: UNK
     Route: 065
  3. PROCHLORPERAZINE. [Suspect]
     Active Substance: PROCHLORPERAZINE
     Indication: NAUSEA
     Dosage: 10 MILLIGRAM, UNKNOWN
     Route: 030
  4. ONDANSETRON [Suspect]
     Active Substance: ONDANSETRON
     Indication: VOMITING

REACTIONS (4)
  - Nausea [Unknown]
  - Drug withdrawal syndrome [Unknown]
  - Vomiting [Unknown]
  - Dystonia [Unknown]
